FAERS Safety Report 19331395 (Version 1)
Quarter: 2021Q2

REPORT INFORMATION
  Report Type: Spontaneous
  Country: KR (occurrence: KR)
  Receive Date: 20210528
  Receipt Date: 20210528
  Transmission Date: 20210717
  Serious: Yes (Hospitalization)
  Sender: FDA-Public Use
  Company Number: KR-GILEAD-2021-0532920

PATIENT
  Age: 57 Year
  Sex: Female

DRUGS (2)
  1. HEPSERA [Suspect]
     Active Substance: ADEFOVIR DIPIVOXIL
     Indication: PRODUCT USED FOR UNKNOWN INDICATION
     Dosage: 10 MG
     Route: 048
     Dates: start: 20100303, end: 20110201
  2. CLEVUDINE [Suspect]
     Active Substance: CLEVUDINE
     Indication: PRODUCT USED FOR UNKNOWN INDICATION
     Dosage: UNK
     Route: 048
     Dates: start: 20080509, end: 20110201

REACTIONS (1)
  - Benign gastrointestinal neoplasm [Recovered/Resolved]

NARRATIVE: CASE EVENT DATE: 20101210
